FAERS Safety Report 22073810 (Version 1)
Quarter: 2023Q1

REPORT INFORMATION
  Report Type: Spontaneous
  Country: PL (occurrence: PL)
  Receive Date: 20230308
  Receipt Date: 20230308
  Transmission Date: 20230417
  Serious: Yes (Other)
  Sender: FDA-Public Use
  Company Number: PL-PFIZER INC-PV202300031165

PATIENT
  Sex: Female
  Weight: 75 kg

DRUGS (1)
  1. XALKORI [Suspect]
     Active Substance: CRIZOTINIB
     Indication: Lung neoplasm malignant
     Dosage: 250 MG (1 PACK OF 60 TABLETS)
     Route: 048
     Dates: start: 20191204, end: 20230106

REACTIONS (3)
  - Toxicity to various agents [Unknown]
  - General physical condition abnormal [Not Recovered/Not Resolved]
  - Asthenia [Unknown]

NARRATIVE: CASE EVENT DATE: 20230113
